FAERS Safety Report 8525289 (Version 2)
Quarter: 2012Q4

REPORT INFORMATION
  Report Type: 
  Country: IT (occurrence: IT)
  Receive Date: 20120423
  Receipt Date: 20121012
  Transmission Date: 20130627
  Serious: Yes (Other)
  Sender: FDA-Public Use
  Company Number: IT-ASTELLAS-2012US004063

PATIENT
  Age: 64 Year
  Sex: Female

DRUGS (8)
  1. TARCEVA [Suspect]
     Indication: LUNG ADENOCARCINOMA METASTATIC
     Dosage: UNK
     Route: 048
     Dates: start: 20070329, end: 20070412
  2. TARCEVA [Suspect]
     Dosage: UNK
     Route: 048
     Dates: start: 20071016
  3. TARCEVA [Suspect]
     Dosage: UNK
     Route: 048
     Dates: start: 20071025
  4. TARCEVA [Suspect]
     Dosage: UNK
     Route: 048
     Dates: start: 20080122, end: 20080226
  5. TARCEVA [Suspect]
     Dosage: UNK
     Route: 048
     Dates: start: 20080619, end: 20080818
  6. TARCEVA [Suspect]
     Dosage: UNK
     Route: 048
     Dates: start: 20081028, end: 20081209
  7. TARCEVA [Suspect]
     Dosage: UNK
     Route: 048
     Dates: end: 20090720
  8. SINTROM [Concomitant]
     Indication: PRODUCT USED FOR UNKNOWN INDICATION
     Dosage: UNK
     Route: 048
     Dates: start: 20070411

REACTIONS (4)
  - Haemorrhage [Recovered/Resolved]
  - Dermatitis acneiform [Recovering/Resolving]
  - Rash [Recovering/Resolving]
  - Duodenal ulcer [Recovered/Resolved with Sequelae]
